FAERS Safety Report 19910989 (Version 2)
Quarter: 2021Q4

REPORT INFORMATION
  Report Type: Spontaneous
  Country: US (occurrence: US)
  Receive Date: 20211004
  Receipt Date: 20211025
  Transmission Date: 20220303
  Serious: Yes (Life-Threatening, Hospitalization)
  Sender: FDA-Public Use
  Company Number: US-DRREDDYS-SPO/USA/21/0141895

PATIENT
  Age: 12 Month
  Sex: Male

DRUGS (2)
  1. LEVETIRACETAM [Suspect]
     Active Substance: LEVETIRACETAM
     Indication: Status epilepticus
  2. MIDAZOLAM [Concomitant]
     Active Substance: MIDAZOLAM
     Indication: Unresponsive to stimuli

REACTIONS (1)
  - Drug ineffective [Unknown]
